FAERS Safety Report 24243406 (Version 1)
Quarter: 2024Q3

REPORT INFORMATION
  Report Type: Spontaneous
  Country: US (occurrence: None)
  Receive Date: 20240823
  Receipt Date: 20240823
  Transmission Date: 20241016
  Serious: Yes (Hospitalization)
  Sender: Public
  Company Number: None

PATIENT
  Sex: Female

DRUGS (5)
  1. DEFERASIROX [Suspect]
     Active Substance: DEFERASIROX
     Indication: Thalassaemia minor
     Dosage: FREQUENCY : DAILY;?
     Route: 048
     Dates: start: 202006
  2. DEFERASIROX [Suspect]
     Active Substance: DEFERASIROX
     Indication: Hereditary haemochromatosis
  3. SUCRALFATE [Concomitant]
     Active Substance: SUCRALFATE
  4. TETRACYCLINE [Concomitant]
     Active Substance: TETRACYCLINE
  5. METRONIDAZOLE [Concomitant]

REACTIONS (1)
  - Gastrointestinal ulcer [None]
